FAERS Safety Report 25752273 (Version 1)
Quarter: 2025Q3

REPORT INFORMATION
  Report Type: Spontaneous
  Country: EU (occurrence: EU)
  Receive Date: 20250902
  Receipt Date: 20250902
  Transmission Date: 20251021
  Serious: Yes (Other)
  Sender: BEIGENE
  Company Number: None

PATIENT
  Age: 55 Year
  Weight: 64 kg

DRUGS (1)
  1. BRUKINSA [Suspect]
     Active Substance: ZANUBRUTINIB
     Indication: Ocular lymphoma

REACTIONS (1)
  - Lacrimal gland enlargement [Recovered/Resolved]
